FAERS Safety Report 24888360 (Version 1)
Quarter: 2025Q1

REPORT INFORMATION
  Report Type: Other
  Country: US (occurrence: US)
  Receive Date: 20250127
  Receipt Date: 20250127
  Transmission Date: 20250409
  Serious: Yes (Death, Hospitalization)
  Sender: ANI
  Company Number: US-ANIPHARMA-015462

PATIENT
  Age: 53 Year
  Sex: Male

DRUGS (3)
  1. OXACILLIN [Suspect]
     Active Substance: OXACILLIN SODIUM
     Indication: Staphylococcal bacteraemia
  2. CEFTAROLINE FOSAMIL [Concomitant]
     Active Substance: CEFTAROLINE FOSAMIL
     Indication: Infection
  3. OXACILLIN [Suspect]
     Active Substance: OXACILLIN SODIUM
     Indication: Meningitis bacterial

REACTIONS (1)
  - Drug ineffective [Fatal]
